FAERS Safety Report 9697814 (Version 1)
Quarter: 2013Q4

REPORT INFORMATION
  Report Type: Spontaneous
  Country: US (occurrence: US)
  Receive Date: 20131120
  Receipt Date: 20131120
  Transmission Date: 20140711
  Serious: No
  Sender: FDA-Public Use
  Company Number: US-PFIZER INC-2013330328

PATIENT
  Age: 57 Year
  Sex: Male
  Weight: 74.38 kg

DRUGS (8)
  1. CHANTIX [Suspect]
     Indication: SMOKING CESSATION THERAPY
     Dosage: 0.5 MG, 1X/DAY
     Route: 048
     Dates: start: 20131012, end: 201310
  2. CHANTIX [Suspect]
     Dosage: 1 MG, 2X/DAY
     Route: 048
     Dates: start: 201310, end: 201311
  3. PLAVIX [Concomitant]
     Dosage: 75 MG, 1X/DAY
  4. LISINOPRIL [Concomitant]
     Dosage: 10 MG, 1X/DAY
  5. ATORVASTATIN [Concomitant]
     Dosage: 40 MG, 1X/DAY
  6. ASPIRIN [Concomitant]
     Dosage: 81 MG, 1X/DAY
  7. GLYBURIDE [Concomitant]
     Dosage: 0.65 MG, 1X/DAY
  8. PENTOXIFYLLINE [Concomitant]
     Dosage: 400 MG, 2X/DAY

REACTIONS (4)
  - Constipation [Unknown]
  - Abnormal dreams [Unknown]
  - Nausea [Unknown]
  - Vomiting [Unknown]
